FAERS Safety Report 9971115 (Version 1)
Quarter: 2014Q1

REPORT INFORMATION
  Report Type: Spontaneous
  Country: US (occurrence: US)
  Receive Date: 20140306
  Receipt Date: 20140306
  Transmission Date: 20141002
  Serious: No
  Sender: FDA-Public Use
  Company Number: US-ABBVIE-13P-163-1147985-00

PATIENT
  Sex: Male

DRUGS (2)
  1. HUMIRA [Suspect]
     Indication: IRITIS
  2. HUMIRA [Suspect]

REACTIONS (2)
  - Iritis [Recovered/Resolved]
  - Off label use [Recovered/Resolved]
